FAERS Safety Report 18198402 (Version 1)
Quarter: 2020Q3

REPORT INFORMATION
  Report Type: Other
  Country: IR (occurrence: IR)
  Receive Date: 20200826
  Receipt Date: 20200826
  Transmission Date: 20201103
  Serious: Yes (Death, Other)
  Sender: FDA-Public Use
  Company Number: IR-ROCHE-2661962

PATIENT
  Age: 38 Year
  Sex: Female

DRUGS (12)
  1. CEFTRIAXONE. [Concomitant]
     Active Substance: CEFTRIAXONE
     Indication: COVID-19
  2. OSELTAMIVIR [Suspect]
     Active Substance: OSELTAMIVIR
     Indication: COVID-19
     Route: 048
  3. FENTANYL. [Concomitant]
     Active Substance: FENTANYL
  4. MISOPROSTOL. [Concomitant]
     Active Substance: MISOPROSTOL
     Route: 042
  5. CISATRACURIUM. [Concomitant]
     Active Substance: CISATRACURIUM
  6. AZITHROMYCIN ANHYDROUS. [Concomitant]
     Active Substance: AZITHROMYCIN ANHYDROUS
     Indication: COVID-19
  7. PROPOFOL. [Concomitant]
     Active Substance: PROPOFOL
  8. VANCOMYCIN [Concomitant]
     Active Substance: VANCOMYCIN
     Indication: PNEUMONIA
     Route: 042
  9. PROPOFOL. [Concomitant]
     Active Substance: PROPOFOL
  10. HYDROXYCHLOROQUINE [Concomitant]
     Active Substance: HYDROXYCHLOROQUINE
     Indication: COVID-19
  11. KALETRA [Concomitant]
     Active Substance: LOPINAVIR\RITONAVIR
     Indication: COVID-19
  12. MEROPENEM. [Concomitant]
     Active Substance: MEROPENEM
     Indication: PNEUMONIA
     Route: 042

REACTIONS (7)
  - Cardiac arrest [Fatal]
  - Intentional product use issue [Unknown]
  - Ejection fraction decreased [Unknown]
  - Off label use [Unknown]
  - Maternal exposure during pregnancy [Unknown]
  - Hypotension [Unknown]
  - Foetal death [Unknown]
